FAERS Safety Report 9786536 (Version 2)
Quarter: 2013Q4

REPORT INFORMATION
  Report Type: Spontaneous
  Country: CH (occurrence: CH)
  Receive Date: 20131227
  Receipt Date: 20131231
  Transmission Date: 20140711
  Serious: Yes (Hospitalization, Other)
  Sender: FDA-Public Use
  Company Number: CH-009507513-1312CHE010240

PATIENT
  Age: 17 Year
  Sex: Female

DRUGS (1)
  1. REMERON [Suspect]
     Dosage: 24 DF AT ONCE
     Route: 048
     Dates: start: 20130910, end: 20130910

REACTIONS (5)
  - Electrocardiogram QT prolonged [Recovered/Resolved]
  - Atrioventricular block first degree [Recovered/Resolved]
  - Miosis [Recovered/Resolved]
  - Suicide attempt [Recovered/Resolved]
  - Somnolence [Recovered/Resolved]
